FAERS Safety Report 15284454 (Version 6)
Quarter: 2018Q4

REPORT INFORMATION
  Report Type: Spontaneous
  Country: US (occurrence: US)
  Receive Date: 20180816
  Receipt Date: 20181023
  Transmission Date: 20190204
  Serious: Yes (Other)
  Sender: FDA-Public Use
  Company Number: US-MYLANLABS-2018M1061618

PATIENT
  Age: 28 Year
  Sex: Female
  Weight: 84 kg

DRUGS (3)
  1. PROGESTERONE. [Suspect]
     Active Substance: PROGESTERONE
     Indication: PRODUCT USED FOR UNKNOWN INDICATION
     Dosage: UNK
  2. XULANE [Suspect]
     Active Substance: ETHINYL ESTRADIOL\NORELGESTROMIN
     Indication: CONTRACEPTION
     Dosage: UNK
     Route: 062
     Dates: start: 20161001, end: 20170831
  3. TORADOL [Concomitant]
     Active Substance: KETOROLAC TROMETHAMINE
     Indication: PAIN
     Dosage: UNK

REACTIONS (26)
  - Dysphonia [Recovering/Resolving]
  - Impaired work ability [Recovering/Resolving]
  - Throat irritation [Recovering/Resolving]
  - Eye disorder [Unknown]
  - Diarrhoea [Recovered/Resolved]
  - Insomnia [Recovering/Resolving]
  - Drug ineffective [Recovering/Resolving]
  - Abortion spontaneous [Recovered/Resolved]
  - Feeding disorder [Recovering/Resolving]
  - Headache [Not Recovered/Not Resolved]
  - Vomiting [Not Recovered/Not Resolved]
  - Fatigue [Recovering/Resolving]
  - Abdominal distension [Unknown]
  - Thrombosis [Not Recovered/Not Resolved]
  - Dyspareunia [Recovering/Resolving]
  - Nausea [Not Recovered/Not Resolved]
  - Hyperhidrosis [Unknown]
  - Visual impairment [Not Recovered/Not Resolved]
  - Pain [Recovering/Resolving]
  - Dizziness [Not Recovered/Not Resolved]
  - Exposure during pregnancy [Recovered/Resolved]
  - Haematochezia [Recovered/Resolved]
  - Facial pain [Recovered/Resolved]
  - Abnormal behaviour [Recovering/Resolving]
  - Bruxism [Recovering/Resolving]
  - Malaise [Unknown]

NARRATIVE: CASE EVENT DATE: 20161001
